FAERS Safety Report 24654632 (Version 1)
Quarter: 2024Q4

REPORT INFORMATION
  Report Type: Spontaneous
  Country: NO (occurrence: NO)
  Receive Date: 20241122
  Receipt Date: 20241122
  Transmission Date: 20250115
  Serious: Yes (Other)
  Sender: SUNOVION
  Company Number: NO-BIAL-BIAL-17737

PATIENT

DRUGS (4)
  1. ESLICARBAZEPINE ACETATE [Suspect]
     Active Substance: ESLICARBAZEPINE ACETATE
     Indication: Epilepsy
     Dosage: UNK UNK, UNKNOWN
     Route: 065
  2. LEVETIRACETAM [Suspect]
     Active Substance: LEVETIRACETAM
     Indication: Epilepsy
     Dosage: UNK UNK, UNKNOWN
     Route: 065
  3. OXCARBAZEPINE [Suspect]
     Active Substance: OXCARBAZEPINE
     Indication: Epilepsy
     Dosage: UNK, UNKNOWN
     Route: 065
  4. VALPROATE [Suspect]
     Active Substance: VALPROIC ACID
     Indication: Epilepsy
     Dosage: UNK, UNKNOWN
     Route: 065

REACTIONS (1)
  - Restlessness [Not Recovered/Not Resolved]
